FAERS Safety Report 16758912 (Version 1)
Quarter: 2019Q3

REPORT INFORMATION
  Report Type: Spontaneous
  Country: JP (occurrence: JP)
  Receive Date: 20190830
  Receipt Date: 20190830
  Transmission Date: 20191005
  Serious: Yes (Hospitalization)
  Sender: FDA-Public Use
  Company Number: JP-TEVA-2019-JP-1102222

PATIENT
  Age: 16 Year
  Sex: Male

DRUGS (5)
  1. EPOPROSTENOL. [Suspect]
     Active Substance: EPOPROSTENOL
     Indication: PULMONARY ARTERIAL HYPERTENSION
     Dosage: 47.2 NG/KG/MIN
     Route: 042
  2. THIAMAZOLE [Suspect]
     Active Substance: METHIMAZOLE
     Indication: HYPERTHYROIDISM
     Route: 048
  3. HYDROCORTISONE. [Suspect]
     Active Substance: HYDROCORTISONE
     Indication: HYPERTHYROIDISM
     Route: 042
  4. BOSENTAN HYDRATE [Concomitant]
     Indication: PULMONARY ARTERIAL HYPERTENSION
     Dosage: 62.5 MILLIGRAM DAILY;
     Route: 065
  5. POTASSIUM IODIDE. [Suspect]
     Active Substance: POTASSIUM IODIDE
     Indication: HYPERTHYROIDISM
     Route: 065

REACTIONS (7)
  - Treatment failure [Unknown]
  - Pulmonary arterial hypertension [Recovering/Resolving]
  - Tricuspid valve incompetence [Unknown]
  - Condition aggravated [Recovering/Resolving]
  - Hyperthyroidism [Recovered/Resolved]
  - Cardiomegaly [Unknown]
  - Goitre [Unknown]
